FAERS Safety Report 5818855-2 (Version None)
Quarter: 2008Q3

REPORT INFORMATION
  Report Type: 
  Country: None (occurrence: None)
  Receive Date: 20080723
  Receipt Date: 20080716
  Transmission Date: 20090109
  Serious: Yes (Hospitalization, Other)
  Sender: FDA-Public Use
  Company Number: US-AMGEN-US295146

PATIENT
  Sex: Male

DRUGS (10)
  1. EPOGEN [Suspect]
     Indication: DIALYSIS
     Route: 058
  2. NIFEDIPINE [Concomitant]
  3. LIPITOR [Concomitant]
  4. CALCIUM CARBONATE [Concomitant]
  5. IRON [Concomitant]
  6. NEPHRO-CAPS [Concomitant]
  7. ZEMPLAR [Concomitant]
  8. ADVAIR DISKUS 100/50 [Concomitant]
  9. ALBUTEROL [Concomitant]
  10. RENAGEL [Concomitant]

REACTIONS (2)
  - HAEMOGLOBIN DECREASED [None]
  - THERAPEUTIC RESPONSE DECREASED [None]
